FAERS Safety Report 7200092-0 (Version None)
Quarter: 2010Q4

REPORT INFORMATION
  Report Type: 
  Country: None (occurrence: None)
  Receive Date: 20101228
  Receipt Date: 20101222
  Transmission Date: 20110411
  Serious: Yes (Other)
  Sender: FDA-Public Use
  Company Number: US-JNJFOC-20101207806

PATIENT
  Sex: Female

DRUGS (4)
  1. FENTANYL-100 [Suspect]
     Indication: PRODUCT USED FOR UNKNOWN INDICATION
     Route: 062
  2. OXYCONTIN [Concomitant]
     Route: 065
  3. PERCOCET [Concomitant]
     Route: 065
  4. LIDODERM [Concomitant]
     Route: 065

REACTIONS (1)
  - HEPATIC CIRRHOSIS [None]
